FAERS Safety Report 17592163 (Version 2)
Quarter: 2023Q1

REPORT INFORMATION
  Report Type: Spontaneous
  Country: BE (occurrence: BE)
  Receive Date: 20200327
  Receipt Date: 20230213
  Transmission Date: 20230417
  Serious: Yes (Death, Hospitalization, Other)
  Sender: FDA-Public Use
  Company Number: BE-ACCORD-174917

PATIENT
  Age: 40 Year
  Sex: Female

DRUGS (6)
  1. CYTARABINE [Suspect]
     Active Substance: CYTARABINE
     Indication: Acute myeloid leukaemia
     Dosage: 200 MILLIGRAM/SQ. METER, (DAYS 1-7)
     Route: 065
  2. CARNITINE [Suspect]
     Active Substance: CARNITINE
     Indication: Hyperammonaemia
     Dosage: 100 MILLIGRAM/KILOGRAM, QD
     Route: 042
  3. LACTULOSE [Suspect]
     Active Substance: LACTULOSE
     Indication: Hyperammonaemia
     Dosage: UNK
     Route: 054
  4. RIFAXIMIN [Suspect]
     Active Substance: RIFAXIMIN
     Indication: Hyperammonaemia
     Dosage: 550 MILLIGRAM, (RECEIVED TWO DOSES)
     Route: 045
  5. PIPERACILLIN SODIUM\TAZOBACTAM SODIUM [Suspect]
     Active Substance: PIPERACILLIN SODIUM\TAZOBACTAM SODIUM
     Indication: Evidence based treatment
     Dosage: UNK
     Route: 065
  6. IDARUBICIN [Concomitant]
     Active Substance: IDARUBICIN
     Indication: Acute myeloid leukaemia
     Dosage: 12 MILLIGRAM/SQ. METER, (DAYS 1-3)
     Route: 065

REACTIONS (15)
  - Hyperammonaemia [Fatal]
  - Brain death [Fatal]
  - Encephalopathy [Fatal]
  - Drug ineffective [Fatal]
  - Skin lesion [Unknown]
  - Hypotension [Unknown]
  - Tachycardia [Unknown]
  - Ascites [Unknown]
  - Cytomegalovirus test positive [Recovered/Resolved]
  - Febrile neutropenia [Unknown]
  - Sepsis [Unknown]
  - Colitis [Unknown]
  - Enterococcal infection [Recovered/Resolved]
  - Respiratory distress [Unknown]
  - Coma [Unknown]
